FAERS Safety Report 23957717 (Version 1)
Quarter: 2024Q2

REPORT INFORMATION
  Report Type: Spontaneous
  Country: US (occurrence: None)
  Receive Date: 20240608
  Receipt Date: 20240608
  Transmission Date: 20240716
  Serious: Yes (Life-Threatening, Hospitalization, Disabling)
  Sender: FDA-Public Use
  Company Number: None

PATIENT
  Age: 42 Year
  Sex: Female
  Weight: 67.5 kg

DRUGS (1)
  1. CIPROFLOXACIN HYDROCHLORIDE [Suspect]
     Active Substance: CIPROFLOXACIN HYDROCHLORIDE
     Indication: Cellulitis
     Dosage: OTHER QUANTITY : 1 TABLET(S);?FREQUENCY : TWICE A DAY;?
     Route: 048
     Dates: start: 20240501, end: 20240508

REACTIONS (9)
  - Anxiety [None]
  - Crying [None]
  - Suicidal ideation [None]
  - Depression [None]
  - Neuropathy peripheral [None]
  - Palpitations [None]
  - Arthralgia [None]
  - Muscle atrophy [None]
  - Toxicity to various agents [None]

NARRATIVE: CASE EVENT DATE: 20240509
